FAERS Safety Report 13028206 (Version 1)
Quarter: 2016Q4

REPORT INFORMATION
  Report Type: Spontaneous
  Country: FR (occurrence: FR)
  Receive Date: 20161214
  Receipt Date: 20161214
  Transmission Date: 20170207
  Serious: Yes (Other)
  Sender: FDA-Public Use
  Company Number: FR-009507513-1612FRA006485

PATIENT
  Age: 0 Day
  Sex: Male
  Weight: 2.35 kg

DRUGS (7)
  1. NORSET [Suspect]
     Active Substance: MIRTAZAPINE
     Dosage: UNK
     Route: 064
     Dates: end: 201604
  2. NOCTAMIDE [Suspect]
     Active Substance: LORMETAZEPAM
     Dosage: UNK
     Route: 064
     Dates: start: 201601, end: 20160611
  3. ATARAX [Suspect]
     Active Substance: HYDROXYZINE\HYDROXYZINE HYDROCHLORIDE
     Dosage: UNK
     Route: 064
     Dates: end: 201601
  4. LARGACTIL [Suspect]
     Active Substance: CHLORPROMAZINE
     Dosage: UNK
     Route: 064
     Dates: start: 201601, end: 20160611
  5. ANAFRANIL [Suspect]
     Active Substance: CLOMIPRAMINE HYDROCHLORIDE
     Dosage: UNK
     Route: 064
     Dates: end: 20160611
  6. VALIUM [Suspect]
     Active Substance: DIAZEPAM
     Dosage: UNK
     Route: 064
     Dates: start: 201601, end: 20160611
  7. SERESTA [Suspect]
     Active Substance: OXAZEPAM
     Dosage: UNK
     Route: 064
     Dates: end: 201601

REACTIONS (1)
  - Hypotonia neonatal [Recovered/Resolved]

NARRATIVE: CASE EVENT DATE: 20160611
